FAERS Safety Report 18976091 (Version 1)
Quarter: 2021Q1

REPORT INFORMATION
  Report Type: Other
  Country: GB (occurrence: GB)
  Receive Date: 20210306
  Receipt Date: 20210306
  Transmission Date: 20210420
  Serious: Yes (Other)
  Sender: FDA-Public Use
  Company Number: GB-LUPIN PHARMACEUTICALS INC.-2021-02605

PATIENT
  Age: 18 Year
  Sex: Female
  Weight: 62 kg

DRUGS (2)
  1. SERTRALINE [Suspect]
     Active Substance: SERTRALINE HYDROCHLORIDE
     Indication: MIXED ANXIETY AND DEPRESSIVE DISORDER
     Dosage: 50 MILLIGRAM
     Route: 048
     Dates: start: 20210104
  2. FLUOXETINE [Concomitant]
     Active Substance: FLUOXETINE HYDROCHLORIDE
     Indication: ILL-DEFINED DISORDER
     Dosage: UNK
     Route: 065

REACTIONS (2)
  - Suicidal ideation [Not Recovered/Not Resolved]
  - Oligomenorrhoea [Not Recovered/Not Resolved]

NARRATIVE: CASE EVENT DATE: 20210204
